FAERS Safety Report 10241562 (Version 5)
Quarter: 2015Q1

REPORT INFORMATION
  Report Type: Spontaneous
  Country: US (occurrence: US)
  Receive Date: 20140617
  Receipt Date: 20150217
  Transmission Date: 20150720
  Serious: Yes (Disabling, Other)
  Sender: FDA-Public Use
  Company Number: US-009507513-1406USA007815

PATIENT
  Sex: Male

DRUGS (5)
  1. ALPRAZOLAM. [Concomitant]
     Active Substance: ALPRAZOLAM
     Indication: ANXIETY
     Dosage: UNK
     Dates: start: 200612, end: 200810
  2. PROPECIA [Suspect]
     Active Substance: FINASTERIDE
     Indication: ANDROGENETIC ALOPECIA
  3. CITALOPRAM [Concomitant]
     Active Substance: CITALOPRAM HYDROBROMIDE
     Indication: DEPRESSION
     Dosage: UNK
     Dates: start: 200612, end: 200902
  4. PROPECIA [Suspect]
     Active Substance: FINASTERIDE
     Indication: PROPHYLAXIS
  5. PROPECIA [Suspect]
     Active Substance: FINASTERIDE
     Indication: ALOPECIA
     Dosage: 1 MG, QD
     Route: 048
     Dates: start: 200810, end: 201003

REACTIONS (34)
  - Suicidal ideation [Unknown]
  - Ejaculation disorder [Not Recovered/Not Resolved]
  - Hypogonadism [Unknown]
  - Feeling abnormal [Not Recovered/Not Resolved]
  - Libido decreased [Not Recovered/Not Resolved]
  - Ejaculation failure [Not Recovered/Not Resolved]
  - Tooth disorder [Unknown]
  - Penis disorder [Unknown]
  - Blunted affect [Unknown]
  - Nocturia [Unknown]
  - Erectile dysfunction [Not Recovered/Not Resolved]
  - Asthenia [Unknown]
  - Depression [Not Recovered/Not Resolved]
  - Weight increased [Unknown]
  - Headache [Unknown]
  - Penile pain [Unknown]
  - Acrochordon [Unknown]
  - Cognitive disorder [Not Recovered/Not Resolved]
  - Personality change [Unknown]
  - Fatigue [Not Recovered/Not Resolved]
  - Testicular atrophy [Unknown]
  - Insomnia [Unknown]
  - Disturbance in attention [Unknown]
  - Dyspnoea [Unknown]
  - Anxiety [Not Recovered/Not Resolved]
  - Sexual dysfunction [Not Recovered/Not Resolved]
  - Visual impairment [Unknown]
  - Rash [Unknown]
  - Muscle atrophy [Unknown]
  - Dysphoria [Unknown]
  - Pollakiuria [Unknown]
  - Testicular pain [Unknown]
  - Fatigue [Unknown]
  - Stress [Unknown]

NARRATIVE: CASE EVENT DATE: 200810
